FAERS Safety Report 5177735-9 (Version None)
Quarter: 2006Q4

REPORT INFORMATION
  Report Type: 
  Country: None (occurrence: None)
  Receive Date: 20061208
  Receipt Date: 20061127
  Transmission Date: 20070319
  Serious: Yes (Life-Threatening, Hospitalization)
  Sender: FDA-Public Use
  Company Number: 2006VX002370

PATIENT
  Age: 53 Year
  Sex: Male

DRUGS (11)
  1. INTERFERON ALFACON-1 [Suspect]
     Indication: HEPATITIS C
     Dosage: 15 UG; QD; SC
     Route: 058
     Dates: start: 20060109
  2. RIBAVIRIN [Concomitant]
  3. NOVOLIN [Concomitant]
  4. INSULIN [Concomitant]
  5. CYMBALTA [Concomitant]
  6. OXYCODONE HCL [Concomitant]
  7. DICLOFENAC SODIUM [Concomitant]
  8. POTASSIUM ACETATE [Concomitant]
  9. DARVOCET-N 100 [Concomitant]
  10. SINGULAIR [Concomitant]
  11. GLYBURIDE [Concomitant]

REACTIONS (8)
  - APNOEIC ATTACK [None]
  - ASTHENIA [None]
  - CARDIAC ARREST [None]
  - CONVULSION [None]
  - DYSARTHRIA [None]
  - PULSE ABSENT [None]
  - RESPIRATORY ARREST [None]
  - WALKING AID USER [None]
